FAERS Safety Report 8904683 (Version 1)
Quarter: 2012Q4

REPORT INFORMATION
  Report Type: 
  Country: US (occurrence: US)
  Receive Date: 20121113
  Receipt Date: 20121113
  Transmission Date: 20130627
  Serious: No
  Sender: FDA-Public Use
  Company Number: US-GLAXOSMITHKLINE-A0965270A

PATIENT
  Age: 58 Year
  Sex: Female

DRUGS (1)
  1. CARVEDILOL [Suspect]
     Indication: CARDIOMYOPATHY
     Dosage: 3.125MG Twice per day
     Route: 048
     Dates: start: 2007

REACTIONS (3)
  - Dizziness [Unknown]
  - Disorientation [Unknown]
  - Cardiac disorder [Unknown]
